FAERS Safety Report 5319534-0 (Version None)
Quarter: 2007Q2

REPORT INFORMATION
  Report Type: 
  Country: None (occurrence: None)
  Receive Date: 20070508
  Receipt Date: 20070426
  Transmission Date: 20071010
  Serious: Yes (Other)
  Sender: FDA-Public Use
  Company Number: US-PFIZER INC-2007033865

PATIENT
  Sex: Female
  Weight: 77.272 kg

DRUGS (15)
  1. CELEBREX [Suspect]
     Indication: ARTHRITIS
  2. CELEBREX [Suspect]
     Indication: BACK PAIN
  3. BEXTRA [Suspect]
     Indication: ARTHRITIS
  4. BEXTRA [Suspect]
     Indication: BACK PAIN
  5. ALL OTHER THERAPEUTIC PRODUCTS [Suspect]
  6. VITAMINS [Suspect]
  7. ASCORBIC ACID [Suspect]
  8. VIOXX [Suspect]
  9. ALL OTHER THERAPEUTIC PRODUCTS [Concomitant]
  10. PROZAC [Concomitant]
  11. UNIRETIC [Concomitant]
  12. PREMARIN [Concomitant]
  13. DALMANE [Concomitant]
  14. ATIVAN [Concomitant]
  15. TRICOR [Concomitant]

REACTIONS (11)
  - ADVERSE EVENT [None]
  - ALOPECIA [None]
  - DEHYDRATION [None]
  - DEMENTIA ALZHEIMER'S TYPE [None]
  - DIARRHOEA [None]
  - FALL [None]
  - FEELING ABNORMAL [None]
  - FLATULENCE [None]
  - MALNUTRITION [None]
  - NAIL GROWTH ABNORMAL [None]
  - SKULL FRACTURE [None]
